FAERS Safety Report 6686887-0 (Version None)
Quarter: 2010Q2

REPORT INFORMATION
  Report Type: 
  Country: None (occurrence: None)
  Receive Date: 20100416
  Receipt Date: 20100416
  Transmission Date: 20101027
  Serious: Yes (Death, Life-Threatening, Hospitalization)
  Sender: FDA-Public Use
  Company Number: None

PATIENT
  Sex: Female
  Weight: 63.5036 kg

DRUGS (2)
  1. LOVENOX [Suspect]
     Indication: PULMONARY EMBOLISM
     Dosage: IV
     Route: 042
     Dates: start: 20090429
  2. HEPARIN [Suspect]
     Indication: PULMONARY EMBOLISM
     Dosage: IV
     Route: 042
     Dates: start: 20090429

REACTIONS (5)
  - HYPOTENSION [None]
  - HYPOVOLAEMIC SHOCK [None]
  - PERITONEAL HAEMORRHAGE [None]
  - RENAL FAILURE [None]
  - SEPSIS SYNDROME [None]
